APPROVED DRUG PRODUCT: BETAINE
Active Ingredient: BETAINE
Strength: 1GM/SCOOPFUL
Dosage Form/Route: FOR SOLUTION;ORAL
Application: A214864 | Product #001 | TE Code: AB
Applicant: NOVITIUM PHARMA LLC
Approved: Nov 23, 2021 | RLD: No | RS: No | Type: RX